FAERS Safety Report 8351680-X (Version None)
Quarter: 2012Q2

REPORT INFORMATION
  Report Type: 
  Country: None (occurrence: None)
  Receive Date: 20120511
  Receipt Date: 20120502
  Transmission Date: 20120825
  Serious: No
  Sender: FDA-Public Use
  Company Number: US-BIOGENIDEC-2012BI015571

PATIENT
  Sex: Female

DRUGS (3)
  1. AMPYRA [Concomitant]
     Indication: MULTIPLE SCLEROSIS
     Dates: start: 20100101
  2. TYSABRI [Suspect]
     Indication: MULTIPLE SCLEROSIS
     Route: 042
     Dates: start: 20050225
  3. TYSABRI [Suspect]
     Route: 042
     Dates: start: 20120215

REACTIONS (5)
  - SENSORY DISTURBANCE [None]
  - PAIN IN EXTREMITY [None]
  - SKIN ATROPHY [None]
  - DYSSTASIA [None]
  - COORDINATION ABNORMAL [None]
